FAERS Safety Report 4552887-X (Version None)
Quarter: 2005Q1

REPORT INFORMATION
  Report Type: 
  Country: None (occurrence: None)
  Receive Date: 20050114
  Receipt Date: 20041221
  Transmission Date: 20050727
  Serious: Yes (Death, Other)
  Sender: FDA-Public Use
  Company Number: US-MERCK-0412USA02616

PATIENT
  Age: 72 Year
  Sex: Female
  Weight: 90 kg

DRUGS (7)
  1. VIOXX [Suspect]
     Indication: CARDIAC FAILURE
     Route: 048
     Dates: start: 20040825, end: 20040831
  2. COVERSYL [Suspect]
     Indication: CARDIAC FAILURE
     Route: 048
     Dates: start: 19951011
  3. SOLU-MEDROL [Suspect]
     Route: 065
  4. DIAFUSOR [Suspect]
     Route: 065
  5. ENBREL [Suspect]
     Indication: RHEUMATOID ARTHRITIS
     Route: 065
     Dates: start: 20010611, end: 20040821
  6. KARDEGIC [Suspect]
     Route: 065
  7. METHYLPREDNISOLONE [Concomitant]
     Indication: MONARTHRITIS
     Route: 065
     Dates: start: 20040822, end: 20040828

REACTIONS (4)
  - DEATH [None]
  - PERITONITIS [None]
  - PNEUMOPERITONEUM [None]
  - SMALL INTESTINAL PERFORATION [None]
